FAERS Safety Report 17248953 (Version 1)
Quarter: 2020Q1

REPORT INFORMATION
  Report Type: Spontaneous
  Country: US (occurrence: US)
  Receive Date: 20200108
  Receipt Date: 20200108
  Transmission Date: 20200409
  Serious: No
  Sender: FDA-Public Use
  Company Number: US-ELI_LILLY_AND_COMPANY-US202001001657

PATIENT
  Age: 44 Year
  Sex: Female

DRUGS (1)
  1. TRULICITY [Suspect]
     Active Substance: DULAGLUTIDE
     Indication: PRODUCT USED FOR UNKNOWN INDICATION
     Dosage: 1.5 MG, UNKNOWN
     Route: 058

REACTIONS (7)
  - Incorrect dose administered [Unknown]
  - Blood glucose increased [Unknown]
  - Injection site bruising [Unknown]
  - Injection site swelling [Unknown]
  - Feeling abnormal [Unknown]
  - Injection site pain [Unknown]
  - Fatigue [Unknown]
